FAERS Safety Report 7874376-7 (Version None)
Quarter: 2011Q4

REPORT INFORMATION
  Report Type: 
  Country: None (occurrence: None)
  Receive Date: 20111030
  Receipt Date: 20110519
  Transmission Date: 20120403
  Serious: No
  Sender: FDA-Public Use
  Company Number: US-AMGEN-USASP2011026105

PATIENT
  Age: 63 Year
  Sex: Male
  Weight: 113.38 kg

DRUGS (7)
  1. PLAVIX [Concomitant]
     Dosage: 75 MG, UNK
     Route: 048
  2. ENBREL [Suspect]
     Indication: PRODUCT USED FOR UNKNOWN INDICATION
     Dosage: 50 MG, 2 TIMES/WK
     Route: 058
  3. LIPITOR [Concomitant]
     Dosage: 20 MG, UNK
     Route: 048
  4. LISINOPRIL AND HYDROCHLORTIAZIDE [Concomitant]
     Route: 048
  5. TOPROL-XL [Concomitant]
     Dosage: 25 MG, UNK
     Route: 048
  6. ZYRTEC [Concomitant]
     Dosage: 10 MG, UNK
     Route: 048
  7. NASONEX [Concomitant]
     Dosage: 50 MG, UNK

REACTIONS (1)
  - INJECTION SITE ERYTHEMA [None]
